FAERS Safety Report 21608121 (Version 1)
Quarter: 2022Q4

REPORT INFORMATION
  Report Type: Spontaneous
  Country: PT (occurrence: PT)
  Receive Date: 20221117
  Receipt Date: 20221117
  Transmission Date: 20230113
  Serious: Yes (Other)
  Sender: FDA-Public Use
  Company Number: PT-VIIV HEALTHCARE ULC-PT2022EME167809

PATIENT

DRUGS (8)
  1. KIVEXA [Suspect]
     Active Substance: ABACAVIR SULFATE\LAMIVUDINE
     Indication: HIV infection
     Dosage: UNK
     Dates: start: 2011, end: 2013
  2. JULUCA [Suspect]
     Active Substance: DOLUTEGRAVIR SODIUM\RILPIVIRINE HYDROCHLORIDE
     Indication: HIV infection
     Dosage: UNK
     Dates: start: 20200102
  3. NEVIRAPINE [Suspect]
     Active Substance: NEVIRAPINE
     Indication: HIV infection
     Dosage: UNK
     Dates: start: 2011, end: 2013
  4. ODEFSEY [Suspect]
     Active Substance: EMTRICITABINE\RILPIVIRINE HYDROCHLORIDE\TENOFOVIR ALAFENAMIDE FUMARATE
     Indication: HIV infection
     Dosage: UNK
     Dates: start: 201909
  5. RAMIPRIL [Suspect]
     Active Substance: RAMIPRIL
     Indication: HIV infection
     Dosage: 10 MG
  6. LERCANIDIPINE [Suspect]
     Active Substance: LERCANIDIPINE
     Indication: HIV infection
     Dosage: 10 MG
  7. ATORVASTATIN [Suspect]
     Active Substance: ATORVASTATIN
     Indication: HIV infection
     Dosage: 20 MG
  8. ALLOPURINOL [Suspect]
     Active Substance: ALLOPURINOL
     Indication: HIV infection
     Dosage: 100 MG

REACTIONS (7)
  - Hepatotoxicity [Unknown]
  - Glomerulonephritis membranous [Unknown]
  - Nephrotic syndrome [Unknown]
  - Weight increased [Recovering/Resolving]
  - Hypertension [Unknown]
  - Dyslipidaemia [Recovering/Resolving]
  - Renal cyst [Unknown]

NARRATIVE: CASE EVENT DATE: 20191201
